FAERS Safety Report 8089492-7 (Version None)
Quarter: 2012Q1

REPORT INFORMATION
  Report Type: 
  Country: None (occurrence: None)
  Receive Date: 20120128
  Receipt Date: 20110712
  Transmission Date: 20120608
  Serious: No
  Sender: FDA-Public Use
  Company Number: US-ABBOTT-11P-163-0838354-00

PATIENT
  Age: 25 Year
  Sex: Female

DRUGS (2)
  1. LOMOTIL [Concomitant]
     Indication: PRODUCT USED FOR UNKNOWN INDICATION
     Dosage: 10MG 2 TABLEST QID
  2. HUMIRA [Suspect]
     Indication: CROHN'S DISEASE
     Dates: start: 20110629

REACTIONS (5)
  - PARANASAL SINUS HYPERSECRETION [None]
  - EAR PAIN [None]
  - SPUTUM DISCOLOURED [None]
  - RESPIRATORY TRACT CONGESTION [None]
  - PRODUCTIVE COUGH [None]
